FAERS Safety Report 8611805 (Version 5)
Quarter: 2015Q1

REPORT INFORMATION
  Report Type: Spontaneous
  Country: US (occurrence: US)
  Receive Date: 20120613
  Receipt Date: 20150317
  Transmission Date: 20150721
  Serious: No
  Sender: FDA-Public Use
  Company Number: US-ASTRAZENECA-2009SE28216

PATIENT
  Age: 23987 Day
  Sex: Female
  Weight: 79.4 kg

DRUGS (27)
  1. PROAIR HFA [Concomitant]
     Active Substance: ALBUTEROL SULFATE
     Dosage: TWO INHALATIONS QID, PRN
     Route: 055
     Dates: start: 20111206
  2. ARISTOCORT [Concomitant]
     Active Substance: TRIAMCINOLONE DIACETATE
     Dates: start: 20111206
  3. SYMBICORT [Suspect]
     Active Substance: BUDESONIDE\FORMOTEROL FUMARATE DIHYDRATE
     Indication: CHRONIC OBSTRUCTIVE PULMONARY DISEASE
     Dosage: 160-4.5 MCG ,  TWO PUFFS BID
     Route: 055
     Dates: start: 20110616
  4. METOPROLOL [Suspect]
     Active Substance: METOPROLOL
     Route: 048
     Dates: start: 20111122
  5. LASIX [Concomitant]
     Active Substance: FUROSEMIDE
     Dates: start: 20111206
  6. PROCARDIA XL [Concomitant]
     Active Substance: NIFEDIPINE
     Dates: start: 20111206
  7. ZYRTEC [Concomitant]
     Active Substance: CETIRIZINE HYDROCHLORIDE
     Dates: start: 20110125
  8. SPIRIVA [Concomitant]
     Active Substance: TIOTROPIUM BROMIDE MONOHYDRATE
  9. RHINOCORT AQUA [Suspect]
     Active Substance: BUDESONIDE
     Dosage: 32 MCG FOUR SPRAYS, EVERY DAY
     Route: 045
     Dates: start: 20111215
  10. LISINOPRIL. [Suspect]
     Active Substance: LISINOPRIL
     Dosage: GENERIC
     Route: 065
  11. COZAAR [Concomitant]
     Active Substance: LOSARTAN POTASSIUM
     Dates: start: 20110302
  12. NASACORT AQ [Concomitant]
     Active Substance: TRIAMCINOLONE ACETONIDE
     Dosage: 55 MCG TWO SPRAY QD
     Dates: start: 20110413
  13. ZANTAC [Concomitant]
     Active Substance: RANITIDINE HYDROCHLORIDE
     Dosage: PRN
     Dates: start: 20110526
  14. ADVAIR HFA [Concomitant]
     Active Substance: FLUTICASONE PROPIONATE\SALMETEROL XINAFOATE
  15. ATIVAN [Concomitant]
     Active Substance: LORAZEPAM
     Dates: start: 20111206
  16. ULTRAM [Concomitant]
     Active Substance: TRAMADOL HYDROCHLORIDE
     Indication: PAIN
     Dosage: 1-2 TAB, QID PRN
     Dates: start: 20111206
  17. PAMELOR [Concomitant]
     Active Substance: NORTRIPTYLINE HYDROCHLORIDE
     Indication: SLEEP DISORDER
     Dates: start: 20111017
  18. DILTIAZEM [Concomitant]
     Active Substance: DILTIAZEM
  19. ACIPHEX [Concomitant]
     Active Substance: RABEPRAZOLE SODIUM
     Dates: start: 20110825
  20. SYMBICORT [Suspect]
     Active Substance: BUDESONIDE\FORMOTEROL FUMARATE DIHYDRATE
     Indication: CHRONIC OBSTRUCTIVE PULMONARY DISEASE
     Dosage: 320 MCG, TWO TIMES A DAY
     Route: 055
     Dates: start: 20091013
  21. PULMICORT FLEXHALER [Concomitant]
     Active Substance: BUDESONIDE
  22. COREG [Concomitant]
     Active Substance: CARVEDILOL
  23. POTASSIUM [Concomitant]
     Active Substance: POTASSIUM
  24. MOBIC [Concomitant]
     Active Substance: MELOXICAM
     Dosage: 7.5 MG, BID PRN
     Dates: start: 20110818
  25. PAMELOR [Concomitant]
     Active Substance: NORTRIPTYLINE HYDROCHLORIDE
     Indication: DIARRHOEA
     Dates: start: 20111017
  26. SYMBICORT [Suspect]
     Active Substance: BUDESONIDE\FORMOTEROL FUMARATE DIHYDRATE
     Indication: CHRONIC OBSTRUCTIVE PULMONARY DISEASE
     Dosage: 2 PUFFS AT NIGHT
     Route: 055
  27. TOPROL XL [Suspect]
     Active Substance: METOPROLOL SUCCINATE
     Dosage: GENERIC
     Route: 065

REACTIONS (15)
  - Oropharyngeal pain [Unknown]
  - Memory impairment [Unknown]
  - Pain in extremity [Unknown]
  - Cough [Unknown]
  - Drug hypersensitivity [Unknown]
  - Pain [Unknown]
  - Limb injury [Unknown]
  - Sleep disorder [Unknown]
  - Diarrhoea [Unknown]
  - Dyspnoea [Unknown]
  - Oral candidiasis [Unknown]
  - Nail operation [Unknown]
  - Intentional product misuse [Unknown]
  - Drug dose omission [Unknown]
  - Off label use [Unknown]

NARRATIVE: CASE EVENT DATE: 20130104
